FAERS Safety Report 21977890 (Version 1)
Quarter: 2023Q1

REPORT INFORMATION
  Report Type: Spontaneous
  Country: DE (occurrence: DE)
  Receive Date: 20230210
  Receipt Date: 20230210
  Transmission Date: 20230418
  Serious: Yes (Death)
  Sender: FDA-Public Use
  Company Number: DE-MYLANLABS-2023M1014541

PATIENT
  Age: 46 Year
  Sex: Female

DRUGS (1)
  1. AZACITIDINE [Suspect]
     Active Substance: AZACITIDINE
     Indication: Angioimmunoblastic T-cell lymphoma
     Dosage: 75 MILLIGRAM/SQ. METER, 28D CYCLE (FOR 7 CONSECUTIVE DAYS EVERY 28 DAYS)
     Route: 058

REACTIONS (1)
  - Tumour lysis syndrome [Fatal]
